FAERS Safety Report 15246809 (Version 3)
Quarter: 2018Q3

REPORT INFORMATION
  Report Type: Spontaneous
  Country: AT (occurrence: AT)
  Receive Date: 20180806
  Receipt Date: 20180902
  Transmission Date: 20181010
  Serious: Yes (Death, Other)
  Sender: FDA-Public Use
  Company Number: PHHY2018AT061763

PATIENT
  Sex: Female

DRUGS (12)
  1. CARBOPLATIN. [Suspect]
     Active Substance: CARBOPLATIN
     Dosage: UNK
     Route: 065
     Dates: start: 201802, end: 201806
  2. TAXOL [Suspect]
     Active Substance: PACLITAXEL
     Indication: LYMPHADENOPATHY
     Dosage: UNK, QW
     Route: 065
     Dates: start: 201612, end: 201706
  3. GEMZAR [Suspect]
     Active Substance: GEMCITABINE HYDROCHLORIDE
     Indication: LYMPHADENOPATHY
  4. AVASTIN [Suspect]
     Active Substance: BEVACIZUMAB
     Dosage: UNK
     Route: 065
     Dates: end: 20180202
  5. CAELYX [Suspect]
     Active Substance: DOXORUBICIN HYDROCHLORIDE
     Indication: OVARIAN CANCER
     Dosage: UNK
     Route: 065
     Dates: end: 201606
  6. GEMZAR [Suspect]
     Active Substance: GEMCITABINE HYDROCHLORIDE
     Indication: OVARIAN CANCER
     Dosage: UNK
     Route: 065
     Dates: start: 201802, end: 201806
  7. TAXOL [Suspect]
     Active Substance: PACLITAXEL
     Indication: OVARIAN CANCER
     Dosage: UNK
     Route: 065
     Dates: start: 201410, end: 201502
  8. AVASTIN [Suspect]
     Active Substance: BEVACIZUMAB
     Indication: LYMPHADENOPATHY
     Dosage: UNK
     Route: 065
     Dates: start: 201511
  9. AFINITOR [Suspect]
     Active Substance: EVEROLIMUS
     Indication: PRODUCT USED FOR UNKNOWN INDICATION
     Dosage: 10 MG, QD
     Route: 065
  10. CARBOPLATIN. [Suspect]
     Active Substance: CARBOPLATIN
     Indication: OVARIAN CANCER
     Dosage: UNK
     Route: 065
     Dates: start: 201410, end: 201502
  11. CARBOPLATIN. [Suspect]
     Active Substance: CARBOPLATIN
     Dosage: UNK
     Route: 065
     Dates: end: 201606
  12. AVASTIN [Suspect]
     Active Substance: BEVACIZUMAB
     Indication: OVARIAN CANCER
     Dosage: UNK
     Route: 065
     Dates: start: 201410, end: 201502

REACTIONS (5)
  - Metastases to meninges [Fatal]
  - Malignant neoplasm progression [Unknown]
  - Lymphadenopathy [Fatal]
  - Drug ineffective [Unknown]
  - Pleural effusion [Fatal]
